FAERS Safety Report 9234466 (Version 1)
Quarter: 2013Q2

REPORT INFORMATION
  Report Type: Spontaneous
  Country: US (occurrence: US)
  Receive Date: 20130416
  Receipt Date: 20130416
  Transmission Date: 20140414
  Serious: No
  Sender: FDA-Public Use
  Company Number: US-009507513-1304USA005410

PATIENT
  Sex: Male

DRUGS (1)
  1. PROPECIA [Suspect]
     Indication: HAIR GROWTH ABNORMAL
     Dosage: 1 MG, QD
     Route: 048

REACTIONS (2)
  - Urinary retention [Recovered/Resolved]
  - Terminal dribbling [Recovered/Resolved]
